APPROVED DRUG PRODUCT: METHYLDOPA
Active Ingredient: METHYLDOPA
Strength: 125MG
Dosage Form/Route: TABLET;ORAL
Application: A071751 | Product #001
Applicant: HALSEY DRUG CO INC
Approved: Mar 28, 1988 | RLD: No | RS: No | Type: DISCN